FAERS Safety Report 9613620 (Version 1)
Quarter: 2013Q4

REPORT INFORMATION
  Report Type: Spontaneous
  Country: US (occurrence: US)
  Receive Date: 20131010
  Receipt Date: 20131010
  Transmission Date: 20140711
  Serious: No
  Sender: FDA-Public Use
  Company Number: US-TEVA-395462USA

PATIENT
  Age: 27 Year
  Sex: Female

DRUGS (2)
  1. JOLESSA TABLET 0.15/0.03MG [Suspect]
     Indication: CONTRACEPTION
  2. JOLESSA TABLET 0.15/0.03MG [Suspect]
     Indication: MENSTRUAL DISORDER

REACTIONS (1)
  - Menorrhagia [Not Recovered/Not Resolved]
